FAERS Safety Report 25969260 (Version 3)
Quarter: 2025Q4

REPORT INFORMATION
  Report Type: Spontaneous
  Country: JP (occurrence: JP)
  Receive Date: 20251028
  Receipt Date: 20251127
  Transmission Date: 20260117
  Serious: Yes (Death)
  Sender: MERCK SHARP & DOHME LLC
  Company Number: JP-009507513-2342935

PATIENT
  Age: 6 Decade
  Sex: Female

DRUGS (2)
  1. KEYTRUDA [Suspect]
     Active Substance: PEMBROLIZUMAB
     Indication: Renal cell carcinoma
     Route: 042
     Dates: start: 20250711, end: 20250827
  2. LENVIMA [Suspect]
     Active Substance: LENVATINIB
     Indication: Metastatic renal cell carcinoma
     Route: 048
     Dates: start: 20250711, end: 20250827

REACTIONS (2)
  - Pulmonary haemorrhage [Fatal]
  - Cardio-respiratory arrest [Fatal]

NARRATIVE: CASE EVENT DATE: 20250828
